FAERS Safety Report 9625555 (Version 2)
Quarter: 2013Q4

REPORT INFORMATION
  Report Type: Report from Study
  Country: CA (occurrence: CA)
  Receive Date: 20131016
  Receipt Date: 20131101
  Transmission Date: 20140711
  Serious: Yes (Death, Hospitalization, Other)
  Sender: FDA-Public Use
  Company Number: PHHY2013CA115664

PATIENT
  Age: 87 Year
  Sex: Male

DRUGS (9)
  1. ACLASTA [Suspect]
     Indication: OSTEOPOROSIS
     Dosage: 5 MG, UNK
     Route: 042
     Dates: start: 20091118
  2. ACLASTA [Suspect]
     Dosage: 5 MG, UNK
     Route: 042
     Dates: start: 20101117
  3. ACLASTA [Suspect]
     Dosage: 5 MG, UNK
     Route: 042
     Dates: start: 20111130
  4. ACLASTA [Suspect]
     Dosage: 5 MG, UNK
     Route: 042
     Dates: start: 20121217
  5. EBIXA [Concomitant]
     Dosage: 10 MG, QD
  6. PLAVIX [Concomitant]
     Dosage: 75 MG, QD
  7. SYNTHROID [Concomitant]
     Dosage: 50 UG, QD
  8. ENALAPRIL HYDROCHLOROTHIAZIDE EG [Concomitant]
     Dosage: 25 MG, QD
  9. PROPAFENONE [Concomitant]
     Dosage: 150 MG, TID

REACTIONS (5)
  - Death [Fatal]
  - Acute respiratory failure [Unknown]
  - Road traffic accident [Unknown]
  - Head injury [Unknown]
  - Multiple injuries [Unknown]
